FAERS Safety Report 10394538 (Version 1)
Quarter: 2014Q3

REPORT INFORMATION
  Report Type: Report from Study
  Country: US (occurrence: US)
  Receive Date: 20140819
  Receipt Date: 20140819
  Transmission Date: 20150326
  Serious: Yes (Hospitalization)
  Sender: FDA-Public Use
  Company Number: US-TAKEDA-2014MPI002174

PATIENT
  Age: 14 Year
  Sex: Female
  Weight: 80 kg

DRUGS (9)
  1. CYTARABINE. [Suspect]
     Active Substance: CYTARABINE
     Dosage: 1000 MG/M2/DOSE OR 33 MG/KG/DOSE (IF BSA { 0.6 M2) IV BID OVER 1-3 HOURS ON DAYS 1-5
     Route: 042
  2. ETOPOSIDE. [Suspect]
     Active Substance: ETOPOSIDE
     Indication: ACUTE MYELOID LEUKAEMIA
     Dosage: 100 MG/M2/DOSE OR 3.3 MG/KG/DOSE (IF BSA { 0.6 M2) IV OVER 60-120 MINUTES ON DAYS 1-5
     Route: 042
     Dates: start: 20140407
  3. ETOPOSIDE. [Suspect]
     Active Substance: ETOPOSIDE
     Dosage: 150 MG/M2/DOSE OR 5 MG/KG/DOSE (IF BSA { 0.6M2) IV OVER 60-120 MINUTES ON DAYS 1-5
     Route: 042
     Dates: start: 20140407
  4. CYTARABINE. [Suspect]
     Active Substance: CYTARABINE
     Dosage: 1000 MG/M2/DOSE OR 33 MG/KG/DOSE (IF BSA { 0.6 M2) IV BID OVER 1-3 HOURS ON DAYS 1-4
     Route: 042
  5. MITOXANTRONE HYDROCHLORIDE. [Suspect]
     Active Substance: MITOXANTRONE HYDROCHLORIDE
     Indication: ACUTE MYELOID LEUKAEMIA
     Dosage: 12 MG/M2/DOSE OR 0.4 MG/KG/DOSE (IF BSA { 0.6 M2) IV OVER 15-30 MINUTES ON DAYS 3-6
     Route: 042
  6. VELCADE [Suspect]
     Active Substance: BORTEZOMIB
     Indication: ACUTE MYELOID LEUKAEMIA
     Dosage: 1.3 MG/M2/DOSE IV PUSH OVER 3-5 SECONDS ON DAYS 1, 4 AND 8
     Route: 042
     Dates: start: 20140407
  7. DAUNORUBICIN HYDROCHLORIDE. [Suspect]
     Active Substance: DAUNORUBICIN HYDROCHLORIDE
     Indication: ACUTE MYELOID LEUKAEMIA
     Dosage: 50 MG/M2/DOSE OR 1.7 MG/KG/DOSE (IF BSA { 0.6 M2) IV OVER 1-15 MINUTES ON DAYS 1, 3 AND 5
     Route: 042
     Dates: start: 20140407
  8. CYTARABINE. [Suspect]
     Active Substance: CYTARABINE
     Indication: ACUTE MYELOID LEUKAEMIA
     Dosage: 20-70MG (AGE BASED DOSING) IT ON DAY 1 ()
     Route: 037
     Dates: start: 20140407
  9. CYTARABINE. [Suspect]
     Active Substance: CYTARABINE
     Dosage: 100 MG/M2/DOSE OR 3.3 MG/KG/DOSE (IF BSA { 0.6 M2) IV BID OVER 15-30 MINUTES ON DAYS 1-8
     Route: 042
     Dates: start: 20140407

REACTIONS (5)
  - Mucosal inflammation [None]
  - Oesophagitis [Not Recovered/Not Resolved]
  - Haematemesis [None]
  - Pneumonia [None]
  - Hypoxia [Not Recovered/Not Resolved]

NARRATIVE: CASE EVENT DATE: 20140805
